FAERS Safety Report 16922955 (Version 2)
Quarter: 2020Q1

REPORT INFORMATION
  Report Type: Report from Study
  Country: None (occurrence: US)
  Receive Date: 20191016
  Receipt Date: 20200121
  Transmission Date: 20200409
  Serious: Yes (Other)
  Sender: FDA-Public Use
  Company Number: US-ABBVIE-19K-163-2961349-00

PATIENT
  Age: 65 Year
  Sex: Male
  Weight: 90.8 kg

DRUGS (7)
  1. OMEPRAZOLE. [Concomitant]
     Active Substance: OMEPRAZOLE
     Indication: DYSPEPSIA
  2. HYOSCINE [Concomitant]
     Active Substance: SCOPOLAMINE
     Indication: DYSPEPSIA
  3. HUMIRA [Suspect]
     Active Substance: ADALIMUMAB
     Indication: CROHN^S DISEASE
     Route: 058
     Dates: start: 2019
  4. LEVITRA [Concomitant]
     Active Substance: VARDENAFIL HYDROCHLORIDE
     Indication: ANTIDEPRESSANT THERAPY
  5. FENOFIBRATE. [Concomitant]
     Active Substance: FENOFIBRATE
     Indication: BLOOD TRIGLYCERIDES
  6. HUMIRA [Suspect]
     Active Substance: ADALIMUMAB
     Indication: PSORIATIC ARTHROPATHY
     Route: 058
     Dates: start: 201808, end: 20190809
  7. PREVALITE [Concomitant]
     Active Substance: CHOLESTYRAMINE
     Indication: DYSPEPSIA

REACTIONS (5)
  - Anal fissure [Recovering/Resolving]
  - Fistula [Recovering/Resolving]
  - Basal cell carcinoma [Recovered/Resolved]
  - Fistula [Recovered/Resolved]
  - Anal infection [Recovering/Resolving]

NARRATIVE: CASE EVENT DATE: 201810
